FAERS Safety Report 24291023 (Version 1)
Quarter: 2024Q3

REPORT INFORMATION
  Report Type: Spontaneous
  Country: US (occurrence: US)
  Receive Date: 20240906
  Receipt Date: 20240906
  Transmission Date: 20241016
  Serious: Yes (Other)
  Sender: BAYER
  Company Number: US-BAYER-2024A127314

PATIENT
  Age: 67 Year
  Sex: Male

DRUGS (2)
  1. ASPIRIN [Suspect]
     Active Substance: ASPIRIN
  2. FONDAPARINUX [Suspect]
     Active Substance: FONDAPARINUX

REACTIONS (2)
  - Haemorrhage intracranial [None]
  - Labelled drug-drug interaction issue [None]
